FAERS Safety Report 8137860-7 (Version None)
Quarter: 2012Q1

REPORT INFORMATION
  Report Type: 
  Country: None (occurrence: None)
  Receive Date: 20120215
  Receipt Date: 20120209
  Transmission Date: 20120608
  Serious: Yes (Hospitalization, Other)
  Sender: FDA-Public Use
  Company Number: US-BAYER-2011-084560

PATIENT
  Age: 36 Year
  Sex: Female
  Weight: 61.224 kg

DRUGS (2)
  1. YAZ [Suspect]
     Indication: CONTRACEPTION
     Dosage: UNK
     Dates: start: 20060101, end: 20090101
  2. YAZ [Suspect]
     Indication: PROPHYLAXIS

REACTIONS (3)
  - GALLBLADDER NON-FUNCTIONING [None]
  - CHOLECYSTECTOMY [None]
  - INJURY [None]
